FAERS Safety Report 12269981 (Version 2)
Quarter: 2017Q3

REPORT INFORMATION
  Report Type: Spontaneous
  Country: FR (occurrence: FR)
  Receive Date: 20160415
  Receipt Date: 20170918
  Transmission Date: 20171127
  Serious: Yes (Death, Hospitalization, Other)
  Sender: FDA-Public Use
  Company Number: FR-ZYDUS-010617

PATIENT
  Age: 67 Year
  Sex: Male

DRUGS (2)
  1. DIETHANOLAMINE FUSIDATE/FUSIDATE SODIUM/FUSIDIC ACID [Interacting]
     Active Substance: DIETHANOLAMINE FUSIDATE\FUSIDATE SODIUM\FUSIDIC ACID
     Indication: STAPHYLOCOCCAL INFECTION
     Dosage: 500MG TWICE A DAY
     Route: 065
     Dates: start: 201402
  2. PRAVASTATIN. [Suspect]
     Active Substance: PRAVASTATIN
     Indication: PRODUCT USED FOR UNKNOWN INDICATION
     Route: 065
     Dates: start: 2007

REACTIONS (6)
  - Multiple organ dysfunction syndrome [Fatal]
  - Drug interaction [Fatal]
  - Rhabdomyolysis [Fatal]
  - Condition aggravated [Fatal]
  - Acute kidney injury [Fatal]
  - Staphylococcal infection [Fatal]

NARRATIVE: CASE EVENT DATE: 201402
